FAERS Safety Report 24245789 (Version 1)
Quarter: 2024Q3

REPORT INFORMATION
  Report Type: Spontaneous
  Country: US (occurrence: US)
  Receive Date: 20240824
  Receipt Date: 20240824
  Transmission Date: 20241016
  Serious: Yes (Other)
  Sender: UNITED THERAPEUTICS
  Company Number: US-UNITED THERAPEUTICS-UNT-2024-025655

PATIENT
  Sex: Male

DRUGS (2)
  1. TYVASO [Suspect]
     Active Substance: TREPROSTINIL
     Indication: Product used for unknown indication
     Dosage: 18 ?G, QID
  2. OFEV [Concomitant]
     Active Substance: NINTEDANIB
     Indication: Lung disorder
     Dosage: UNK

REACTIONS (2)
  - Hypoxia [Recovered/Resolved]
  - Ventilation perfusion mismatch [Recovered/Resolved]
